FAERS Safety Report 21112859 (Version 2)
Quarter: 2022Q3

REPORT INFORMATION
  Report Type: Spontaneous
  Country: US (occurrence: US)
  Receive Date: 20220721
  Receipt Date: 20220722
  Transmission Date: 20221027
  Serious: No
  Sender: FDA-Public Use
  Company Number: US-PFIZER INC-202200987090

PATIENT
  Sex: Female
  Weight: 49.887 kg

DRUGS (1)
  1. PAXLOVID [Suspect]
     Active Substance: NIRMATRELVIR\RITONAVIR
     Indication: COVID-19 treatment
     Dosage: 2 DF (150 MG NILMATRELVIR AND 100 MG OF RITONAVIR)

REACTIONS (1)
  - Product prescribing error [Unknown]
